FAERS Safety Report 24711017 (Version 1)
Quarter: 2024Q4

REPORT INFORMATION
  Report Type: Spontaneous
  Country: ES (occurrence: ES)
  Receive Date: 20241209
  Receipt Date: 20241209
  Transmission Date: 20250115
  Serious: Yes (Life-Threatening, Hospitalization)
  Sender: MDD OPERATIONS
  Company Number: ES-ZAMBON-202403239ESP

PATIENT
  Age: 72 Year
  Sex: Female

DRUGS (4)
  1. XADAGO [Suspect]
     Active Substance: SAFINAMIDE MESYLATE
     Indication: Parkinson^s disease
     Route: 048
     Dates: start: 2020
  2. APOMORPHINE HYDROCHLORIDE [Suspect]
     Active Substance: APOMORPHINE HYDROCHLORIDE
     Indication: Parkinson^s disease
     Dosage: APOMORPHINE BOMB FROM 8H TO 22H AT 1.7ML/H (8.5MG/H) AND FROM 22H TO 8H AT 0.9ML/H (4.5MG/H)
     Route: 058
     Dates: start: 2022, end: 2024
  3. SINEMET [Suspect]
     Active Substance: CARBIDOPA\LEVODOPA
     Indication: Parkinson^s disease
     Dosage: 100 MG (25 MG/250 MG),
     Route: 048
     Dates: start: 2014
  4. SINEMET [Suspect]
     Active Substance: CARBIDOPA\LEVODOPA
     Dosage: 50 MG (50 MG/200 MG)
     Route: 048
     Dates: start: 2020

REACTIONS (1)
  - Haemolytic anaemia [Recovering/Resolving]

NARRATIVE: CASE EVENT DATE: 20241001
